FAERS Safety Report 11024681 (Version 1)
Quarter: 2015Q2

REPORT INFORMATION
  Report Type: Spontaneous
  Country: US (occurrence: None)
  Receive Date: 20150413
  Receipt Date: 20150413
  Transmission Date: 20150821
  Serious: No
  Sender: FDA-Public Use
  Company Number: None

PATIENT
  Sex: Male

DRUGS (1)
  1. RISPERDAL [Suspect]
     Active Substance: RISPERIDONE

REACTIONS (6)
  - Nipple swelling [None]
  - Headache [None]
  - Nipple disorder [None]
  - Chest pain [None]
  - Hangover [None]
  - Breast pain [None]
